FAERS Safety Report 8987947 (Version 1)
Quarter: 2012Q4

REPORT INFORMATION
  Report Type: 
  Country: ES (occurrence: ES)
  Receive Date: 20121227
  Receipt Date: 20121227
  Transmission Date: 20130627
  Serious: Yes (Hospitalization)
  Sender: FDA-Public Use
  Company Number: ES-VERTEX PHARMACEUTICALS INC.-2012-026651

PATIENT
  Age: 51 Year
  Sex: Male

DRUGS (1)
  1. INCIVO [Suspect]
     Indication: HEPATITIS C
     Dosage: Dosage Form: Tablet
     Route: 048
     Dates: start: 20120914, end: 20121022

REACTIONS (4)
  - Renal failure [Unknown]
  - Eosinophilia [Unknown]
  - Pyrexia [Unknown]
  - Drug eruption [Unknown]
